FAERS Safety Report 13207577 (Version 2)
Quarter: 2017Q2

REPORT INFORMATION
  Report Type: Spontaneous
  Country: US (occurrence: US)
  Receive Date: 20170209
  Receipt Date: 20170503
  Transmission Date: 20170830
  Serious: No
  Sender: FDA-Public Use
  Company Number: US-SA-2017SA006702

PATIENT
  Age: 70 Year
  Sex: Female
  Weight: 83.4 kg

DRUGS (2)
  1. PRALUENT [Suspect]
     Active Substance: ALIROCUMAB
     Indication: BLOOD CHOLESTEROL INCREASED
     Route: 065
     Dates: start: 201607
  2. ALIROCUMAB PREFILLED PEN [Concomitant]
     Active Substance: ALIROCUMAB
     Indication: BLOOD CHOLESTEROL INCREASED
     Dates: start: 201607

REACTIONS (7)
  - Low density lipoprotein increased [Not Recovered/Not Resolved]
  - LDL/HDL ratio increased [Not Recovered/Not Resolved]
  - Non-high-density lipoprotein cholesterol increased [Not Recovered/Not Resolved]
  - Very low density lipoprotein increased [Not Recovered/Not Resolved]
  - Blood triglycerides increased [Not Recovered/Not Resolved]
  - Blood cholesterol increased [Not Recovered/Not Resolved]
  - High density lipoprotein abnormal [Not Recovered/Not Resolved]

NARRATIVE: CASE EVENT DATE: 2016
